FAERS Safety Report 11528406 (Version 1)
Quarter: 2015Q3

REPORT INFORMATION
  Report Type: Spontaneous
  Country: US (occurrence: US)
  Receive Date: 20150921
  Receipt Date: 20150921
  Transmission Date: 20151125
  Serious: No
  Sender: FDA-Public Use
  Company Number: US-TEVA-546504USA

PATIENT
  Sex: Female

DRUGS (1)
  1. CLONAZEPAM. [Suspect]
     Active Substance: CLONAZEPAM
     Indication: TREMOR
     Dosage: 1 MILLIGRAM DAILY;
     Dates: start: 201403

REACTIONS (3)
  - Incorrect product storage [Unknown]
  - Tremor [Unknown]
  - Anxiety [Unknown]
